FAERS Safety Report 9863515 (Version 3)
Quarter: 2014Q1

REPORT INFORMATION
  Report Type: Spontaneous
  Country: PT (occurrence: PT)
  Receive Date: 20140203
  Receipt Date: 20140219
  Transmission Date: 20141002
  Serious: Yes (Hospitalization, Other)
  Sender: FDA-Public Use
  Company Number: PT-PFIZER INC-2013334085

PATIENT
  Age: 99 Year
  Sex: Female

DRUGS (15)
  1. ZITHROMAX [Suspect]
     Indication: PNEUMONIA
     Dosage: 500 MG, 1X/DAY
     Route: 042
     Dates: start: 20131031, end: 20131104
  2. CLAVEPEN [Suspect]
     Indication: PROPHYLAXIS
     Dosage: 2000/200 MG, 3X/DAY (8/8H)
     Route: 042
     Dates: start: 20131031, end: 20131104
  3. SPIRONOLACTONE [Concomitant]
     Indication: PNEUMONIA
     Dosage: 1 DF, UNK
     Route: 048
     Dates: end: 20131031
  4. TRENTAL [Concomitant]
     Indication: PNEUMONIA
     Dosage: 400 MG, UNK
     Route: 048
     Dates: end: 20131031
  5. ASPIRINA GR [Concomitant]
     Indication: PROPHYLAXIS
     Dosage: 100 MG, 1X/DAY
     Route: 048
     Dates: end: 20131031
  6. LASIX [Concomitant]
     Indication: PROPHYLAXIS
     Dosage: 40 MG, UNK
     Route: 048
     Dates: end: 20131031
  7. ZANICOR [Concomitant]
     Indication: PROPHYLAXIS
     Dosage: 10 MG, UNK
     Route: 048
     Dates: end: 20131031
  8. SODIUM CHLORIDE BRAUN [Concomitant]
     Indication: PROPHYLAXIS
     Dosage: 1000 ML, 1X/DAY
     Route: 042
     Dates: start: 20131030
  9. CAPTOPRIL LABESFAL [Concomitant]
     Indication: PROPHYLAXIS
     Dosage: 25 MG, AS NEEDED
     Route: 048
     Dates: start: 20131030
  10. ACETYLSALICYLIC ACID RATIOPHARM [Concomitant]
     Indication: PROPHYLAXIS
     Dosage: 100 MG, 1X/DAY
     Route: 048
     Dates: start: 20131031
  11. PARACETAMOL LABESFAL [Concomitant]
     Indication: PROPHYLAXIS
     Dosage: 1000 MG, AS NEEDED
     Route: 048
     Dates: start: 20131031
  12. LOVENOX [Concomitant]
     Indication: PROPHYLAXIS
     Dosage: 40MG/0.4ML, 1X/DAY
     Route: 058
     Dates: start: 20131031
  13. FUROSEMIDA LABESFAL [Concomitant]
     Indication: PROPHYLAXIS
     Dosage: 20MG/2ML, 1X/DAY
     Route: 042
     Dates: start: 20131031
  14. IPRAXA [Concomitant]
     Indication: PROPHYLAXIS
     Dosage: 0.25 MG, 3X/DAY (8/8H)
     Route: 055
     Dates: start: 20131031
  15. ACTRAPID [Concomitant]
     Indication: PROPHYLAXIS
     Dosage: 1 IU, AS NEEDED
     Route: 058
     Dates: start: 20131031

REACTIONS (4)
  - Renal impairment [Recovering/Resolving]
  - Rash erythematous [Recovered/Resolved]
  - Blood creatinine increased [Recovering/Resolving]
  - Blood urea increased [Recovering/Resolving]
